FAERS Safety Report 4284632-X (Version None)
Quarter: 2004Q1

REPORT INFORMATION
  Report Type: 
  Country: None (occurrence: None)
  Receive Date: 20040130
  Receipt Date: 20040114
  Transmission Date: 20041129
  Serious: Yes (Death, Hospitalization)
  Sender: FDA-Public Use
  Company Number: EWC031237383

PATIENT
  Age: 72 Year
  Sex: Male
  Weight: 52 kg

DRUGS (9)
  1. GEMCITABINE HYDROCHLORIDE           (GEMCITABINE) [Suspect]
     Indication: NON-SMALL CELL LUNG CANCER
     Dosage: 1530 MG/4 OTHER
     Route: 042
     Dates: start: 20030410
  2. CISPLATIN [Suspect]
     Indication: NON-SMALL CELL LUNG CANCER
     Dosage: 107 MG/2 OTHER
     Route: 042
     Dates: start: 20030410
  3. MYPRODOL [Concomitant]
  4. MYONAL (EPERISONE HYDROCHLORIDE) [Concomitant]
  5. AMINOPHYLLINE [Concomitant]
  6. RHINATHIOL (CARBOCISTEINE) [Concomitant]
  7. COUGH SYRUP [Concomitant]
  8. FAMOTIDINE [Concomitant]
  9. NEWLANTA [Concomitant]

REACTIONS (4)
  - ANAEMIA [None]
  - HAEMOPTYSIS [None]
  - LEUKOPENIA [None]
  - THROMBOCYTOPENIA [None]
